FAERS Safety Report 8219329-4 (Version None)
Quarter: 2012Q1

REPORT INFORMATION
  Report Type: 
  Country: None (occurrence: None)
  Receive Date: 20120319
  Receipt Date: 20120307
  Transmission Date: 20120608
  Serious: Yes (Hospitalization)
  Sender: FDA-Public Use
  Company Number: DE-ELI_LILLY_AND_COMPANY-DE201203002522

PATIENT
  Sex: Male

DRUGS (5)
  1. ENALAPRIL [Concomitant]
  2. METFORMIN HYDROCHLORIDE [Concomitant]
  3. ALPHA-LIPONSAEURE [Concomitant]
  4. BYDUREON [Suspect]
     Indication: TYPE 2 DIABETES MELLITUS
     Dosage: 2 MG, WEEKLY (1/W)
     Route: 058
     Dates: start: 20111001, end: 20120201
  5. GLIMEPIRID [Concomitant]

REACTIONS (1)
  - RECTAL CANCER [None]
